FAERS Safety Report 15227927 (Version 1)
Quarter: 2018Q3

REPORT INFORMATION
  Report Type: Spontaneous
  Country: US (occurrence: US)
  Receive Date: 20180801
  Receipt Date: 20180801
  Transmission Date: 20181010
  Serious: Yes (Other)
  Sender: FDA-Public Use
  Company Number: PHEH2018US031422

PATIENT
  Sex: Female

DRUGS (1)
  1. COSENTYX [Suspect]
     Active Substance: SECUKINUMAB
     Indication: PRODUCT USED FOR UNKNOWN INDICATION
     Dosage: 150 MG, ONCE A WEEK FOR 5 WEEKS THEN ONCE MONTHLY
     Route: 065
     Dates: start: 20160919, end: 20171114

REACTIONS (1)
  - Pain [Recovered/Resolved]
